FAERS Safety Report 17605761 (Version 1)
Quarter: 2020Q1

REPORT INFORMATION
  Report Type: Spontaneous
  Country: US (occurrence: US)
  Receive Date: 20200331
  Receipt Date: 20200331
  Transmission Date: 20200409
  Serious: Yes (Hospitalization, Other)
  Sender: FDA-Public Use
  Company Number: US-GLAXOSMITHKLINE-US2020GSK053326

PATIENT
  Age: 68 Year
  Sex: Female

DRUGS (9)
  1. ONDANSETRON [Interacting]
     Active Substance: ONDANSETRON
     Indication: VOMITING
  2. LAMOTRIGINE. [Suspect]
     Active Substance: LAMOTRIGINE
     Indication: ANTIDEPRESSANT THERAPY
     Dosage: 200 MG, 1D
     Route: 048
  3. MIRTAZAPINE. [Interacting]
     Active Substance: MIRTAZAPINE
     Indication: ANTIDEPRESSANT THERAPY
     Dosage: 45 MG, QD (AT NIGHT)
     Route: 048
  4. DULOXETINE. [Interacting]
     Active Substance: DULOXETINE
     Indication: ANTIDEPRESSANT THERAPY
     Dosage: 60 MG, BID
     Route: 048
  5. TRAZODONE [Interacting]
     Active Substance: TRAZODONE HYDROCHLORIDE
     Indication: ANTIDEPRESSANT THERAPY
     Dosage: 350 MG, QD (AT BEDTIME)
     Route: 048
  6. GABAPENTIN. [Interacting]
     Active Substance: GABAPENTIN
     Indication: PAIN PROPHYLAXIS
     Dosage: 1200 MG, TID
     Route: 048
  7. ONDANSETRON [Interacting]
     Active Substance: ONDANSETRON
     Indication: NAUSEA
     Dosage: UNK
     Route: 042
  8. TRAMADOL. [Interacting]
     Active Substance: TRAMADOL
     Indication: PAIN PROPHYLAXIS
     Dosage: 50 MG, BID
     Route: 048
  9. DEXTROMETHORPHAN + GUAIFENESIN [Interacting]
     Active Substance: DEXTROMETHORPHAN\GUAIFENESIN
     Indication: UPPER RESPIRATORY TRACT INFECTION
     Dosage: UNK

REACTIONS (19)
  - Nausea [Recovering/Resolving]
  - Vomiting [Recovering/Resolving]
  - Blood glucose increased [Recovering/Resolving]
  - Clonus [Recovering/Resolving]
  - Hypertonia [Recovering/Resolving]
  - Drug interaction [Unknown]
  - Gait disturbance [Recovering/Resolving]
  - White blood cell count increased [Recovering/Resolving]
  - Abdominal tenderness [Recovering/Resolving]
  - Tremor [Recovering/Resolving]
  - Serotonin syndrome [Recovering/Resolving]
  - Diarrhoea [Recovering/Resolving]
  - Hyperhidrosis [Recovering/Resolving]
  - Asthenia [Recovering/Resolving]
  - Mucosal dryness [Recovering/Resolving]
  - Joint stiffness [Recovering/Resolving]
  - Hyperreflexia [Recovering/Resolving]
  - Tachycardia [Recovering/Resolving]
  - Metabolic acidosis [Recovering/Resolving]
